FAERS Safety Report 10101858 (Version 4)
Quarter: 2014Q2

REPORT INFORMATION
  Report Type: Spontaneous
  Country: JP (occurrence: None)
  Receive Date: 20140422
  Receipt Date: 20140507
  Transmission Date: 20141212
  Serious: Yes (Life-Threatening, Hospitalization, Other)
  Sender: FDA-Public Use
  Company Number: ADR-2014-00651

PATIENT
  Age: 40 Year
  Sex: Male
  Weight: 45 kg

DRUGS (2)
  1. GABALON [Suspect]
     Dosage: 150 MCG/HOUR
  2. DIPRIVAN [Suspect]

REACTIONS (10)
  - Cheyne-Stokes respiration [None]
  - Device computer issue [None]
  - Incorrect dose administered [None]
  - Medication error [None]
  - Overdose [None]
  - Somnolence [None]
  - Asthenia [None]
  - Listless [None]
  - Oxygen saturation decreased [None]
  - Depressed level of consciousness [None]
